FAERS Safety Report 10931001 (Version 1)
Quarter: 2015Q1

REPORT INFORMATION
  Report Type: Spontaneous
  Country: JP (occurrence: JP)
  Receive Date: 20150319
  Receipt Date: 20150319
  Transmission Date: 20150721
  Serious: Yes (Life-Threatening, Hospitalization)
  Sender: FDA-Public Use
  Company Number: JP-ASTRAZENECA-2015SE17936

PATIENT
  Sex: Male

DRUGS (3)
  1. ANTIANXIETICS [Concomitant]
     Route: 065
  2. HYPNOTICS AND SEDATIVES [Concomitant]
     Active Substance: UNSPECIFIED INGREDIENT
     Route: 065
  3. CASODEX [Suspect]
     Active Substance: BICALUTAMIDE
     Dosage: 80 MG, 60 TABLETS, UNKNOWN (4800 MG)
     Route: 048

REACTIONS (2)
  - Overdose [Unknown]
  - Suicide attempt [Unknown]
